FAERS Safety Report 26001047 (Version 2)
Quarter: 2025Q4

REPORT INFORMATION
  Report Type: Report from Study
  Country: EU (occurrence: EU)
  Receive Date: 20251105
  Receipt Date: 20251113
  Transmission Date: 20260118
  Serious: Yes (Hospitalization)
  Sender: JOHNSON AND JOHNSON
  Company Number: EU-JNJFOC-20251022540

PATIENT
  Age: 32 Year
  Sex: Female
  Weight: 125 kg

DRUGS (21)
  1. INFLIXIMAB [Suspect]
     Active Substance: INFLIXIMAB
     Indication: Crohn^s disease
     Route: 041
     Dates: start: 20031222, end: 20110204
  2. INFLIXIMAB [Suspect]
     Active Substance: INFLIXIMAB
     Dosage: LAST ADMINISTRATION REPORTED WAS ON 17-SEP-2018
     Route: 041
     Dates: start: 20130206, end: 20130319
  3. INFLIXIMAB [Suspect]
     Active Substance: INFLIXIMAB
     Dosage: LAST ADMINISTRATION REPORTED WAS ON 9-OCT-2020
     Route: 065
     Dates: start: 20191125, end: 20200423
  4. INFLIXIMAB [Suspect]
     Active Substance: INFLIXIMAB
     Route: 041
     Dates: start: 20141101, end: 20150317
  5. INFLIXIMAB [Suspect]
     Active Substance: INFLIXIMAB
     Route: 041
     Dates: start: 20110204, end: 20110204
  6. INFLIXIMAB [Suspect]
     Active Substance: INFLIXIMAB
     Route: 041
     Dates: start: 20151116, end: 20160322
  7. INFLIXIMAB [Suspect]
     Active Substance: INFLIXIMAB
     Route: 041
     Dates: start: 20160503, end: 20160913
  8. INFLIXIMAB [Suspect]
     Active Substance: INFLIXIMAB
     Route: 041
     Dates: start: 20131212, end: 20141007
  9. INFLIXIMAB [Suspect]
     Active Substance: INFLIXIMAB
     Route: 041
     Dates: start: 20031222, end: 20091023
  10. INFLIXIMAB [Suspect]
     Active Substance: INFLIXIMAB
     Route: 041
     Dates: start: 20091120, end: 20100507
  11. INFLIXIMAB [Suspect]
     Active Substance: INFLIXIMAB
     Route: 041
     Dates: start: 20161214, end: 20170301
  12. INFLIXIMAB [Suspect]
     Active Substance: INFLIXIMAB
     Route: 041
     Dates: start: 20200618, end: 20201009
  13. INFLIXIMAB [Suspect]
     Active Substance: INFLIXIMAB
     Route: 041
     Dates: start: 20150427, end: 20151006
  14. INFLIXIMAB [Suspect]
     Active Substance: INFLIXIMAB
     Route: 041
     Dates: start: 20130319, end: 20130502
  15. INFLIXIMAB [Suspect]
     Active Substance: INFLIXIMAB
     Route: 041
     Dates: start: 20180504, end: 20180917
  16. INFLIXIMAB [Suspect]
     Active Substance: INFLIXIMAB
     Route: 041
     Dates: start: 20130628, end: 20130906
  17. INFLIXIMAB [Suspect]
     Active Substance: INFLIXIMAB
     Route: 041
     Dates: start: 20171114, end: 20180323
  18. INFLIXIMAB [Suspect]
     Active Substance: INFLIXIMAB
     Route: 041
     Dates: start: 20170418, end: 20171003
  19. INFLIXIMAB [Concomitant]
     Active Substance: INFLIXIMAB
     Indication: Product used for unknown indication
     Dates: start: 20201009
  20. INFLIXIMAB [Concomitant]
     Active Substance: INFLIXIMAB
     Dosage: LAST ADMINISTRATION REPORTED WAS ON 15-OCT-2019
  21. AMOXICILLIN\CLAVULANIC ACID [Concomitant]
     Active Substance: AMOXICILLIN\CLAVULANIC ACID
     Indication: Product used for unknown indication
     Route: 042

REACTIONS (3)
  - Post procedural infection [Recovered/Resolved]
  - Fall [Recovered/Resolved]
  - Drug ineffective [Unknown]

NARRATIVE: CASE EVENT DATE: 20250814
